FAERS Safety Report 9879948 (Version 2)
Quarter: 2014Q1

REPORT INFORMATION
  Report Type: Spontaneous
  Country: JP (occurrence: JP)
  Receive Date: 20140207
  Receipt Date: 20140324
  Transmission Date: 20141002
  Serious: Yes (Other)
  Sender: FDA-Public Use
  Company Number: JP-ROCHE-1342520

PATIENT
  Sex: Female

DRUGS (3)
  1. AVASTIN [Suspect]
     Indication: GLIOBLASTOMA
     Route: 041
     Dates: start: 20131015, end: 20131115
  2. AVASTIN [Suspect]
     Indication: OVARIAN CANCER
  3. TEMODAL [Suspect]
     Indication: GLIOBLASTOMA
     Route: 048

REACTIONS (2)
  - Hepatic function abnormal [Recovering/Resolving]
  - Thrombosis [Not Recovered/Not Resolved]
